FAERS Safety Report 10735575 (Version 2)
Quarter: 2015Q2

REPORT INFORMATION
  Report Type: Spontaneous
  Country: CA (occurrence: CA)
  Receive Date: 20150126
  Receipt Date: 20150407
  Transmission Date: 20150821
  Serious: Yes (Hospitalization, Other)
  Sender: FDA-Public Use
  Company Number: CA-AMGEN-CANSP2015004983

PATIENT
  Age: 58 Year
  Sex: Male

DRUGS (12)
  1. NEUPOGEN [Suspect]
     Active Substance: FILGRASTIM
     Indication: AGRANULOCYTOSIS
     Dosage: 300 MCG, 3 DOSES Q24H
     Route: 058
     Dates: start: 20150102, end: 20150104
  2. CLOZAPINE. [Suspect]
     Active Substance: CLOZAPINE
     Indication: PRODUCT USED FOR UNKNOWN INDICATION
     Dosage: 100MG AM AND 250MG HS
     Route: 065
     Dates: end: 20141231
  3. IBUPROFEN. [Concomitant]
     Active Substance: IBUPROFEN
     Dosage: UNK, DAILY
  4. LORAZEPAM. [Concomitant]
     Active Substance: LORAZEPAM
     Dosage: 05 MG, Q6H
  5. RAMIPRIL. [Concomitant]
     Active Substance: RAMIPRIL
     Indication: HYPERTENSION
     Dosage: UNK
     Dates: end: 20150101
  6. MEROPENEM. [Concomitant]
     Active Substance: MEROPENEM
     Dosage: UNK
     Dates: start: 20150102
  7. AZITHRO [Concomitant]
     Dosage: UNK
  8. HALOPERIDOL. [Concomitant]
     Active Substance: HALOPERIDOL
     Dosage: 1.5 MG, BID
  9. METFORMIN [Concomitant]
     Active Substance: METFORMIN HYDROCHLORIDE
     Indication: GLUCOSE TOLERANCE IMPAIRED
     Dosage: UNK
     Dates: end: 20150113
  10. PANTOPRAZOLE [Concomitant]
     Active Substance: PANTOPRAZOLE SODIUM
     Dosage: UNK
  11. VENLAFAXINE [Concomitant]
     Active Substance: VENLAFAXINE HYDROCHLORIDE
     Dosage: 150 MG, DAILY
  12. RAMIPRIL. [Concomitant]
     Active Substance: RAMIPRIL
     Dosage: 2.5 MG, AM
     Dates: start: 20150202

REACTIONS (20)
  - Liver function test abnormal [Unknown]
  - Urinary tract infection [Unknown]
  - Marrow hyperplasia [Unknown]
  - Enterococcal infection [Unknown]
  - Lung infiltration [Unknown]
  - Cardiac disorder [Unknown]
  - Liver disorder [Unknown]
  - No therapeutic response [Unknown]
  - Myeloid maturation arrest [Unknown]
  - White blood cell count decreased [Unknown]
  - Candida infection [Unknown]
  - Haemoglobin decreased [Unknown]
  - Renal disorder [Unknown]
  - Neutrophil count decreased [Unknown]
  - Lethargy [Unknown]
  - Eating disorder [Unknown]
  - Dysphagia [Unknown]
  - Sinus tachycardia [Unknown]
  - Pyrexia [Unknown]
  - Urosepsis [Unknown]

NARRATIVE: CASE EVENT DATE: 201501
